FAERS Safety Report 6377049-5 (Version None)
Quarter: 2009Q3

REPORT INFORMATION
  Report Type: 
  Country: None (occurrence: None)
  Receive Date: 20090925
  Receipt Date: 20090911
  Transmission Date: 20100115
  Serious: Yes (Hospitalization)
  Sender: FDA-Public Use
  Company Number: FR-MYLANLABS-2009S1015980

PATIENT
  Age: 83 Year
  Sex: Female

DRUGS (10)
  1. METFORMIN HCL [Suspect]
     Indication: DIABETES MELLITUS
     Route: 048
     Dates: start: 20090101
  2. FUROSEMIDE [Suspect]
     Indication: HYPERTENSION
  3. DAONIL [Suspect]
     Indication: DIABETES MELLITUS
     Route: 048
     Dates: end: 20090426
  4. ALDOMET [Suspect]
  5. CARDENSIEL [Suspect]
     Indication: CARDIAC FAILURE
  6. TRIATEC [Suspect]
     Indication: HYPERTENSION
  7. NEURONTIN [Concomitant]
  8. LIPANTHYL [Concomitant]
  9. OGASTORO [Concomitant]
  10. COUMADIN [Concomitant]

REACTIONS (4)
  - BRADYARRHYTHMIA [None]
  - HYPOGLYCAEMIA [None]
  - HYPOTENSION [None]
  - RENAL FAILURE [None]
